FAERS Safety Report 24162788 (Version 1)
Quarter: 2024Q3

REPORT INFORMATION
  Report Type: Spontaneous
  Country: US (occurrence: US)
  Receive Date: 20240801
  Receipt Date: 20240801
  Transmission Date: 20241016
  Serious: No
  Sender: PFIZER
  Company Number: US-PFIZER INC-202400224934

PATIENT
  Age: 47 Year
  Sex: Female
  Weight: 79.83 kg

DRUGS (1)
  1. PAXLOVID [Suspect]
     Active Substance: NIRMATRELVIR\RITONAVIR
     Indication: COVID-19 treatment
     Dosage: [NIRMATRELVIR 300 MG]/[RITONAVIR 100 MG]; FREQUENCY: 2X/DAY (BUT JUST TOOK ONE DOSE YET)
     Route: 048
     Dates: start: 20240727

REACTIONS (6)
  - Dysgeusia [Unknown]
  - Oropharyngeal discomfort [Unknown]
  - Memory impairment [Unknown]
  - Brain fog [Unknown]
  - Balance disorder [Unknown]
  - Fatigue [Unknown]
